FAERS Safety Report 5483934-9 (Version None)
Quarter: 2007Q4

REPORT INFORMATION
  Report Type: 
  Country: None (occurrence: None)
  Receive Date: 20071012
  Receipt Date: 20071002
  Transmission Date: 20080405
  Serious: Yes (Hospitalization)
  Sender: FDA-Public Use
  Company Number: FR-AVENTIS-200713124FR

PATIENT
  Age: 86 Year
  Sex: Male

DRUGS (7)
  1. LOVENOX [Suspect]
     Indication: PHLEBITIS
     Route: 058
     Dates: start: 20070730, end: 20070905
  2. LOVENOX [Suspect]
     Indication: ANGIOPLASTY
     Route: 058
     Dates: start: 20070730, end: 20070905
  3. CIFLOX                             /00697201/ [Suspect]
     Indication: ERYSIPELAS
     Route: 048
     Dates: start: 20070808, end: 20070822
  4. LINEZOLID [Suspect]
     Indication: ERYSIPELAS
     Route: 048
     Dates: start: 20070808, end: 20070822
  5. TAZOCILLINE [Suspect]
     Indication: ERYSIPELAS
     Route: 042
     Dates: start: 20070808, end: 20070822
  6. COLCHIMAX (FRANCE) [Suspect]
     Route: 048
     Dates: start: 20070812, end: 20070822
  7. PENICILLIN G [Concomitant]
     Indication: ERYSIPELAS
     Dates: start: 20070730

REACTIONS (3)
  - LEUKOPENIA [None]
  - PANCYTOPENIA [None]
  - THROMBOCYTOPENIA [None]
